FAERS Safety Report 21541041 (Version 1)
Quarter: 2022Q4

REPORT INFORMATION
  Report Type: Spontaneous
  Country: US (occurrence: None)
  Receive Date: 20221031
  Receipt Date: 20221031
  Transmission Date: 20230113
  Serious: Yes (Hospitalization)
  Sender: FDA-Public Use
  Company Number: None

PATIENT

DRUGS (5)
  1. VANCOMYCIN [Suspect]
     Active Substance: VANCOMYCIN
  2. CEFEPIME [Suspect]
     Active Substance: CEFEPIME HYDROCHLORIDE
  3. CIPROFLOXACIN [Suspect]
     Active Substance: CIPROFLOXACIN
  4. MEROPENEM [Suspect]
     Active Substance: MEROPENEM
  5. ZOSYN [Suspect]
     Active Substance: PIPERACILLIN SODIUM\TAZOBACTAM SODIUM

REACTIONS (3)
  - Sepsis [None]
  - Endocarditis [None]
  - Clostridium test positive [None]

NARRATIVE: CASE EVENT DATE: 20210723
